FAERS Safety Report 18885950 (Version 1)
Quarter: 2021Q1

REPORT INFORMATION
  Report Type: Spontaneous
  Country: US (occurrence: US)
  Receive Date: 20210212
  Receipt Date: 20210212
  Transmission Date: 20210420
  Serious: Yes (Hospitalization)
  Sender: FDA-Public Use
  Company Number: None

PATIENT
  Age: 55 Year
  Sex: Female
  Weight: 64.9 kg

DRUGS (8)
  1. BAMLANIVIMAB FOR EUA [Suspect]
     Active Substance: BAMLANIVIMAB
     Indication: COVID-19
     Route: 042
     Dates: start: 20210107, end: 20210107
  2. BUDESONIDE?FORMOTEROL [Concomitant]
     Active Substance: BUDESONIDE\FORMOTEROL
  3. OLANZAPINE. [Concomitant]
     Active Substance: OLANZAPINE
  4. POTASSIUM CHLORIDE. [Concomitant]
     Active Substance: POTASSIUM CHLORIDE
  5. ONDANSETRON [Concomitant]
     Active Substance: ONDANSETRON
  6. FENTANYL. [Concomitant]
     Active Substance: FENTANYL
  7. ALBUTEROL. [Concomitant]
     Active Substance: ALBUTEROL
  8. DEXTRIN\WHEAT [Concomitant]
     Active Substance: ICODEXTRIN\WHEAT

REACTIONS (10)
  - Vomiting [None]
  - Neck pain [None]
  - Headache [None]
  - Photosensitivity reaction [None]
  - Eye pain [None]
  - Abdominal pain [None]
  - Muscle tightness [None]
  - Metastasis [None]
  - Constipation [None]
  - Nausea [None]

NARRATIVE: CASE EVENT DATE: 20210123
